FAERS Safety Report 11087949 (Version 1)
Quarter: 2015Q2

REPORT INFORMATION
  Report Type: Spontaneous
  Country: HK (occurrence: HK)
  Receive Date: 20150504
  Receipt Date: 20150504
  Transmission Date: 20150821
  Serious: Yes (Death)
  Sender: FDA-Public Use
  Company Number: HK-BAYER-2015-166364

PATIENT
  Age: 52 Year
  Sex: Female

DRUGS (3)
  1. METFORMIN [Suspect]
     Active Substance: METFORMIN HYDROCHLORIDE
     Dosage: 50 DF, ONCE
  2. LISINOPRIL. [Suspect]
     Active Substance: LISINOPRIL
     Dosage: 15 DF
  3. ADALAT [Suspect]
     Active Substance: NIFEDIPINE
     Dosage: 70 DF, ONCE

REACTIONS (3)
  - Hypotension [Fatal]
  - Overdose [None]
  - Shock [Fatal]
